FAERS Safety Report 6508006-3 (Version None)
Quarter: 2009Q4

REPORT INFORMATION
  Report Type: 
  Country: None (occurrence: None)
  Receive Date: 20091210
  Receipt Date: 20090812
  Transmission Date: 20100525
  Serious: Yes (Other)
  Sender: FDA-Public Use
  Company Number: CIP09002218

PATIENT
  Age: 82 Year
  Sex: Female

DRUGS (5)
  1. ACTONEL [Suspect]
     Indication: OSTEOPOROSIS
     Dosage: 150 MG ONCE A MONTH, ORAL
     Route: 048
     Dates: start: 20090731
  2. HYZAAR /01284801/ (HYDROCHLOROTHAZIDE, LOSARTAN POTASSIUM) [Concomitant]
  3. SYNTHROID [Concomitant]
  4. PRILOSEC /00661201/ (OMEPRAZOLE) [Concomitant]
  5. PREDNISONE [Concomitant]

REACTIONS (4)
  - CONDITION AGGRAVATED [None]
  - MOBILITY DECREASED [None]
  - MYALGIA [None]
  - PAIN [None]
